FAERS Safety Report 20323492 (Version 1)
Quarter: 2022Q1

REPORT INFORMATION
  Report Type: Spontaneous
  Country: US (occurrence: None)
  Receive Date: 20220111
  Receipt Date: 20220111
  Transmission Date: 20220423
  Serious: Yes (Other)
  Sender: FDA-Public Use
  Company Number: None

PATIENT
  Age: 79 Year
  Sex: Female
  Weight: 52.2 kg

DRUGS (11)
  1. MYLERAN [Suspect]
     Active Substance: BUSULFAN
     Indication: Polycythaemia
     Dosage: FREQUENCY : DAILY;?
     Route: 048
     Dates: start: 20210512
  2. ASPIRIN [Concomitant]
     Active Substance: ASPIRIN
  3. TYLENOL WITH CODEINE [Concomitant]
     Active Substance: ACETAMINOPHEN\CODEINE PHOSPHATE
  4. ALDACTONE [Concomitant]
     Active Substance: SPIRONOLACTONE
  5. FUROSEMIDE [Concomitant]
     Active Substance: FUROSEMIDE
  6. LOSARTAN [Concomitant]
     Active Substance: LOSARTAN
  7. MUPIROCIN [Concomitant]
     Active Substance: MUPIROCIN
  8. VITAMINS [Concomitant]
     Active Substance: VITAMINS
  9. FLUOCINONIDE [Concomitant]
     Active Substance: FLUOCINONIDE
  10. BISOPROLOL [Concomitant]
     Active Substance: BISOPROLOL
  11. CLARITIN-D NOS [Concomitant]
     Active Substance: LORATADINE\PSEUDOEPHEDRINE SULFATE

REACTIONS (1)
  - Full blood count abnormal [None]

NARRATIVE: CASE EVENT DATE: 20220111
